FAERS Safety Report 10361739 (Version 1)
Quarter: 2014Q3

REPORT INFORMATION
  Report Type: Report from Study
  Country: CA (occurrence: CA)
  Receive Date: 20140805
  Receipt Date: 20140805
  Transmission Date: 20150326
  Serious: Yes (Other)
  Sender: FDA-Public Use
  Company Number: CA-BRISTOL-MYERS SQUIBB COMPANY-21263561

PATIENT
  Sex: Female

DRUGS (8)
  1. EXTERNAL-PREDNISONE [Concomitant]
  2. ABATACEPT [Suspect]
     Active Substance: ABATACEPT
     Indication: RHEUMATOID ARTHRITIS
     Dosage: 750 MG, Q4WK
     Route: 042
     Dates: start: 20090216
  3. DEMEROL [Concomitant]
     Active Substance: MEPERIDINE HYDROCHLORIDE
  4. SULFASALAZINE. [Concomitant]
     Active Substance: SULFASALAZINE
  5. FLEXERIL [Concomitant]
     Active Substance: CYCLOBENZAPRINE HYDROCHLORIDE
  6. MOTRIN [Concomitant]
     Active Substance: IBUPROFEN
  7. NEURONTIN [Concomitant]
     Active Substance: GABAPENTIN
  8. ELAVIL [Concomitant]
     Active Substance: AMITRIPTYLINE HYDROCHLORIDE

REACTIONS (2)
  - Migraine [Unknown]
  - Hernia [Unknown]
